FAERS Safety Report 8396941 (Version 5)
Quarter: 2014Q2

REPORT INFORMATION
  Report Type: Spontaneous
  Country: US (occurrence: US)
  Receive Date: 20120209
  Receipt Date: 20140515
  Transmission Date: 20141212
  Serious: Yes (Hospitalization, Other)
  Sender: FDA-Public Use
  Company Number: US-PFIZER INC-2012031697

PATIENT
  Age: 75 Year
  Sex: Male

DRUGS (3)
  1. LYRICA [Suspect]
     Dosage: 150 MG, 2X/DAY
  2. NORCO [Concomitant]
     Dosage: (10/325)
  3. SOMA [Concomitant]
     Dosage: 350 MG, UNK

REACTIONS (7)
  - Abasia [Unknown]
  - Dysstasia [Unknown]
  - Gait disturbance [Unknown]
  - Bedridden [Unknown]
  - Muscle strain [Unknown]
  - Pain [Unknown]
  - Dry mouth [Unknown]
